FAERS Safety Report 7963675-6 (Version None)
Quarter: 2011Q4

REPORT INFORMATION
  Report Type: 
  Country: None (occurrence: None)
  Receive Date: 20111208
  Receipt Date: 20111114
  Transmission Date: 20120403
  Serious: No
  Sender: FDA-Public Use
  Company Number: US-BAYER-2011-112296

PATIENT
  Age: 33 Year
  Sex: Female

DRUGS (2)
  1. MEGACE [Concomitant]
     Indication: ENDOMETRIAL CANCER
     Dosage: 80 MG, UNK
  2. MIRENA [Suspect]
     Indication: ENDOMETRIAL CANCER
     Dosage: 20 MCG/24HR, CONT
     Route: 015
     Dates: start: 20111021, end: 20111109

REACTIONS (1)
  - DEVICE EXPULSION [None]
